FAERS Safety Report 4534171-3 (Version None)
Quarter: 2004Q4

REPORT INFORMATION
  Report Type: 
  Country: None (occurrence: None)
  Receive Date: 20041214
  Receipt Date: 20040902
  Transmission Date: 20050328
  Serious: No
  Sender: FDA-Public Use
  Company Number: 2004233447US

PATIENT
  Sex: Female

DRUGS (3)
  1. BEXTRA [Suspect]
     Indication: ABDOMINAL PAIN LOWER
     Dosage: 10 MG, QD, ORAL
     Route: 048
     Dates: start: 20040901, end: 20040901
  2. SYNTHROID [Concomitant]
  3. ACETAMINOPHEN [Concomitant]

REACTIONS (10)
  - ABDOMINAL PAIN UPPER [None]
  - ASTHENIA [None]
  - ASTHMA [None]
  - CHEST PAIN [None]
  - COUGH [None]
  - DIZZINESS [None]
  - HERNIA [None]
  - MEMORY IMPAIRMENT [None]
  - OBSTRUCTIVE AIRWAYS DISORDER [None]
  - THIRST [None]
